FAERS Safety Report 24022361 (Version 1)
Quarter: 2024Q2

REPORT INFORMATION
  Report Type: Report from Study
  Country: IT (occurrence: IT)
  Receive Date: 20240627
  Receipt Date: 20240627
  Transmission Date: 20240716
  Serious: No
  Sender: FDA-Public Use
  Company Number: None

PATIENT
  Age: 75 Year
  Sex: Female
  Weight: 73.0 kg

DRUGS (7)
  1. ROZLYTREK [Suspect]
     Active Substance: ENTRECTINIB
     Indication: Lung adenocarcinoma
     Dosage: 600 MG / DAY FOR 28 DAYS 3 TABLETS OF 200 MG / DAY
     Route: 065
     Dates: start: 20230322, end: 20230410
  2. CLOPIDOGREL [Concomitant]
     Active Substance: CLOPIDOGREL BISULFATE
     Indication: Acute myocardial infarction
     Dosage: CLOPIDOGREL ACT*28CPR RIV 75MG 1 CPR ORE 8
     Dates: start: 202209
  3. RAMIPRIL [Concomitant]
     Active Substance: RAMIPRIL
     Indication: Hypertension
     Dosage: TRIATEC*28CPR DIV 2,5MG 1 CPR ORE 8
     Dates: start: 2015
  4. BISOPROLOL [Concomitant]
     Active Substance: BISOPROLOL\BISOPROLOL FUMARATE
     Indication: Acute myocardial infarction
     Dosage: CONGESCOR*28CPR RIV 1,25MG 1 CPR ORE 8
     Dates: start: 202209
  5. PERINDOPRIL [Concomitant]
     Active Substance: PERINDOPRIL
     Indication: Hypertension
     Dosage: PERINDOPRIL TE*30CPR RIV 5MG 1 CPR ORE 8
     Dates: start: 2015
  6. ASPIRIN [Concomitant]
     Active Substance: ASPIRIN
     Indication: Acute myocardial infarction
     Dosage: CARDIOASPIRIN*30CPR GAST 100MG 1 CPR ORE 12
     Dates: start: 202209
  7. LEVOTHYROXINE SODIUM [Concomitant]
     Active Substance: LEVOTHYROXINE SODIUM
     Indication: Hypothyroidism
     Dosage: EUTIROX*50CPR 50MG 1 CPR ORE 7
     Dates: start: 2010

REACTIONS (4)
  - Generalised oedema [Not Recovered/Not Resolved]
  - Dyspnoea [Not Recovered/Not Resolved]
  - Arthralgia [Recovering/Resolving]
  - Urinary incontinence [Not Recovered/Not Resolved]

NARRATIVE: CASE EVENT DATE: 20230411
